FAERS Safety Report 7611618-7 (Version None)
Quarter: 2011Q3

REPORT INFORMATION
  Report Type: 
  Country: None (occurrence: None)
  Receive Date: 20110715
  Receipt Date: 20110707
  Transmission Date: 20111222
  Serious: Yes (Life-Threatening, Other)
  Sender: FDA-Public Use
  Company Number: FR-ACTELION-A-CH2011-50253

PATIENT
  Sex: Male

DRUGS (3)
  1. ZAVESCA [Suspect]
     Dosage: UNK MG, UNK
     Route: 048
     Dates: end: 20110512
  2. ZAVESCA [Suspect]
     Indication: NIEMANN-PICK DISEASE
     Dosage: 200 MG, TID
     Route: 048
     Dates: start: 20101013, end: 20110220
  3. ZAVESCA [Suspect]
     Dosage: 100 MG, TID
     Route: 048
     Dates: start: 20110221, end: 20110501

REACTIONS (8)
  - MENTAL DISORDER [None]
  - PARADOXICAL DRUG REACTION [None]
  - SUICIDE ATTEMPT [None]
  - HALLUCINATION [None]
  - WEIGHT DECREASED [None]
  - GAIT DISTURBANCE [None]
  - DEPRESSION [None]
  - DRUG INEFFECTIVE [None]
